FAERS Safety Report 5300518-3 (Version None)
Quarter: 2007Q2

REPORT INFORMATION
  Report Type: 
  Country: None (occurrence: None)
  Receive Date: 20070413
  Receipt Date: 20070413
  Transmission Date: 20071010
  Serious: Yes (Death)
  Sender: FDA-Public Use
  Company Number: None

PATIENT
  Sex: Female
  Weight: 69.8539 kg

DRUGS (8)
  1. REVLIMID [Suspect]
     Indication: MULTIPLE MYELOMA
     Dosage: 10MG DAILY 21D/28D PO
     Route: 048
  2. VICODIN [Concomitant]
  3. PHOSLO [Concomitant]
  4. NEPHROCAPS [Concomitant]
  5. NEUPOGEN [Concomitant]
  6. DOCUSATE SODIUM [Concomitant]
  7. CULTURELLE [Concomitant]
  8. OMEPRAZOLE` [Concomitant]

REACTIONS (7)
  - ACIDOSIS [None]
  - BLOOD GLUCOSE DECREASED [None]
  - HYPOTENSION [None]
  - HYPOXIA [None]
  - PANCYTOPENIA [None]
  - PNEUMONIA [None]
  - SEPTIC SHOCK [None]
